FAERS Safety Report 15683174 (Version 4)
Quarter: 2019Q1

REPORT INFORMATION
  Report Type: Spontaneous
  Country: GB (occurrence: GB)
  Receive Date: 20181204
  Receipt Date: 20190328
  Transmission Date: 20190417
  Serious: Yes (Death, Hospitalization, Other)
  Sender: FDA-Public Use
  Company Number: GB-AUROBINDO-AUR-APL-2018-057936

PATIENT

DRUGS (8)
  1. TEICOPLANIN [Suspect]
     Active Substance: TEICOPLANIN
     Indication: HIP ARTHROPLASTY
     Dosage: 400 MILLIGRAM
     Route: 042
     Dates: start: 20180925, end: 20180925
  2. ATORVASTATIN [Concomitant]
     Active Substance: ATORVASTATIN
     Indication: PRODUCT USED FOR UNKNOWN INDICATION
     Dosage: UNK
     Route: 065
  3. GENTAMICIN. [Suspect]
     Active Substance: GENTAMICIN
     Indication: HIP ARTHROPLASTY
     Dosage: 120 MILLIGRAM
     Route: 042
     Dates: start: 20180925, end: 20180925
  4. TRANEXAMIC ACID. [Suspect]
     Active Substance: TRANEXAMIC ACID
     Indication: HIP ARTHROPLASTY
     Dosage: UNK
     Route: 065
     Dates: start: 20180925, end: 20180925
  5. PROPOFOL. [Concomitant]
     Active Substance: PROPOFOL
     Indication: HIP ARTHROPLASTY
     Dosage: 60 MILLIGRAM
     Route: 042
     Dates: start: 20180925, end: 20180925
  6. FENTANYL. [Concomitant]
     Active Substance: FENTANYL
     Indication: HIP ARTHROPLASTY
     Dosage: 100 MICROGRAM
     Route: 042
     Dates: start: 20180925, end: 20180925
  7. TEICOPLANIN [Suspect]
     Active Substance: TEICOPLANIN
     Indication: ANTIBIOTIC PROPHYLAXIS
  8. ATENOLOL. [Concomitant]
     Active Substance: ATENOLOL
     Indication: PRODUCT USED FOR UNKNOWN INDICATION
     Dosage: UNK
     Route: 065

REACTIONS (2)
  - Anaphylactic reaction [Fatal]
  - Anaphylactic shock [Fatal]

NARRATIVE: CASE EVENT DATE: 20180925
